FAERS Safety Report 16395951 (Version 1)
Quarter: 2019Q2

REPORT INFORMATION
  Report Type: Spontaneous
  Country: FR (occurrence: FR)
  Receive Date: 20190605
  Receipt Date: 20190605
  Transmission Date: 20190711
  Serious: Yes (Hospitalization)
  Sender: FDA-Public Use
  Company Number: PHHY2019FR128142

PATIENT
  Age: 33 Year
  Sex: Female
  Weight: 60 kg

DRUGS (2)
  1. AMOXICILLIN. [Suspect]
     Active Substance: AMOXICILLIN
     Indication: DENTAL CYST
     Dosage: 3 G, QD
     Route: 048
     Dates: start: 20190503, end: 20190506
  2. PYOSTACINE [Suspect]
     Active Substance: PRISTINAMYCIN
     Indication: DENTAL CYST
     Dosage: 1.5 G, QD
     Route: 048
     Dates: start: 20190506, end: 20190506

REACTIONS (1)
  - Rash maculo-papular [Recovered/Resolved]

NARRATIVE: CASE EVENT DATE: 20190506
